FAERS Safety Report 5900390-4 (Version None)
Quarter: 2008Q3

REPORT INFORMATION
  Report Type: 
  Country: None (occurrence: None)
  Receive Date: 20080926
  Receipt Date: 20080916
  Transmission Date: 20090109
  Serious: Yes (Life-Threatening)
  Sender: FDA-Public Use
  Company Number: FR-ABBOTT-08P-056-0468613-00

PATIENT
  Sex: Female
  Weight: 50 kg

DRUGS (2)
  1. HUMIRA [Suspect]
     Indication: CROHN'S DISEASE
     Route: 058
     Dates: start: 20080601
  2. METHOTREXATE [Concomitant]
     Indication: CROHN'S DISEASE
     Dates: start: 20080601

REACTIONS (3)
  - CONDITION AGGRAVATED [None]
  - MUSCLE SPASMS [None]
  - PHLEBITIS DEEP [None]
